FAERS Safety Report 4520353-3 (Version None)
Quarter: 2004Q4

REPORT INFORMATION
  Report Type: 
  Country: None (occurrence: None)
  Receive Date: 20041207
  Receipt Date: 20041125
  Transmission Date: 20050328
  Serious: Yes (Hospitalization)
  Sender: FDA-Public Use
  Company Number: 04.090-PRES-FRA

PATIENT
  Age: 79 Year
  Sex: Male

DRUGS (6)
  1. PRESTOLE [Suspect]
     Indication: DRUG USE FOR UNKNOWN INDICATION
     Route: 048
     Dates: end: 20041021
  2. FONLIPOL [Concomitant]
     Route: 048
  3. KENZEN [Concomitant]
     Dosage: 8MG PER DAY
     Route: 048
  4. TOCOPA [Concomitant]
     Dosage: 500MG PER DAY
     Route: 048
     Dates: end: 20041021
  5. MEDIATENSYL [Concomitant]
     Dosage: 60MG PER DAY
     Route: 048
     Dates: start: 20041014, end: 20041021
  6. ANTIHISTAMINE [Concomitant]
     Dates: start: 20040823

REACTIONS (5)
  - PEMPHIGOID [None]
  - PRURITUS [None]
  - RASH [None]
  - SKIN LESION [None]
  - URTICARIA [None]
